FAERS Safety Report 19444202 (Version 2)
Quarter: 2021Q3

REPORT INFORMATION
  Report Type: Spontaneous
  Country: US (occurrence: US)
  Receive Date: 20210621
  Receipt Date: 20210702
  Transmission Date: 20211014
  Serious: No
  Sender: FDA-Public Use
  Company Number: US-SA-2021SA202616

PATIENT
  Age: 24 Year
  Sex: Female

DRUGS (1)
  1. AUBAGIO [Suspect]
     Active Substance: TERIFLUNOMIDE
     Indication: MULTIPLE SCLEROSIS
     Dosage: 7 MG, QD
     Route: 048
     Dates: start: 202106

REACTIONS (8)
  - Fatigue [Unknown]
  - Erythema [Unknown]
  - Skin exfoliation [Unknown]
  - Chapped lips [Unknown]
  - Lip disorder [Unknown]
  - Blister [Unknown]
  - Skin atrophy [Unknown]
  - Cough [Unknown]

NARRATIVE: CASE EVENT DATE: 2021
